FAERS Safety Report 9400585 (Version 1)
Quarter: 2013Q3

REPORT INFORMATION
  Report Type: Spontaneous
  Country: US (occurrence: None)
  Receive Date: 20130712
  Receipt Date: 20130712
  Transmission Date: 20140515
  Serious: Yes (Other)
  Sender: FDA-Public Use
  Company Number: None

PATIENT
  Age: 87 Year
  Sex: Female
  Weight: 63.05 kg

DRUGS (1)
  1. GENERIC DRUG FOR PLAVIX [Suspect]
     Indication: STENT PLACEMENT
     Route: 048
     Dates: start: 201208, end: 201209

REACTIONS (3)
  - Rash generalised [None]
  - Skin ulcer [None]
  - Unevaluable event [None]
